FAERS Safety Report 10565664 (Version 1)
Quarter: 2014Q4

REPORT INFORMATION
  Report Type: Spontaneous
  Country: US (occurrence: None)
  Receive Date: 20141104
  Receipt Date: 20141104
  Transmission Date: 20150529
  Serious: Yes (Disabling, Other)
  Sender: FDA-Public Use
  Company Number: None

PATIENT
  Age: 54 Year
  Sex: Male
  Weight: 78.02 kg

DRUGS (1)
  1. ATIVAN [Suspect]
     Active Substance: LORAZEPAM
     Indication: ANXIETY
     Dosage: 6 MG?6 X DAILY ?TAKEN BY MOUTH
     Route: 048
     Dates: start: 20041122, end: 20141103

REACTIONS (3)
  - Drug dependence [None]
  - Impaired work ability [None]
  - Drug ineffective [None]

NARRATIVE: CASE EVENT DATE: 20141103
